FAERS Safety Report 10252868 (Version 1)
Quarter: 2014Q2

REPORT INFORMATION
  Report Type: Report from Study
  Country: ES (occurrence: ES)
  Receive Date: 20140623
  Receipt Date: 20140623
  Transmission Date: 20141212
  Serious: Yes (Hospitalization)
  Sender: FDA-Public Use
  Company Number: ES-ROCHE-1081542

PATIENT
  Age: 70 Year
  Sex: Male
  Weight: 84.5 kg

DRUGS (15)
  1. BEVACIZUMAB [Suspect]
     Indication: COLON CANCER
     Dosage: LAST DOSE PRIOR TO SAE: 11/JUN/2012
     Route: 042
     Dates: start: 20120611
  2. BEVACIZUMAB [Suspect]
     Indication: RECTAL CANCER
  3. OXALIPLATIN [Suspect]
     Indication: COLON CANCER
     Dosage: LAST DOSE PRIOR TO SAE: 11/JUN/2012
     Route: 042
     Dates: start: 20120611
  4. OXALIPLATIN [Suspect]
     Indication: RECTAL CANCER
  5. LEUCOVORIN CALCIUM [Suspect]
     Indication: COLON CANCER
     Dosage: LAST DOSE PRIOR TO SAE: 11/JUN/2012
     Route: 042
     Dates: start: 20120611
  6. LEUCOVORIN CALCIUM [Suspect]
     Indication: RECTAL CANCER
  7. FLUOROURACIL [Suspect]
     Indication: COLON CANCER
     Dosage: LAST DOSE PRIOR TO SAE: 11/JUN/2012
     Route: 040
     Dates: start: 20120611
  8. FLUOROURACIL [Suspect]
     Indication: RECTAL CANCER
     Dosage: LAST DOSE PRIOR TO: SAE 11/JUN/2012
     Route: 042
     Dates: start: 20120611
  9. ZOLPIDEM [Concomitant]
     Indication: INSOMNIA
     Route: 048
     Dates: start: 2012
  10. PROPRANOLOL [Concomitant]
     Indication: HYPERTENSION
     Route: 048
     Dates: start: 2010
  11. OMEPRAZOLE [Concomitant]
     Route: 048
     Dates: start: 2012
  12. ASS [Concomitant]
     Indication: PROPHYLAXIS
     Route: 048
     Dates: start: 2012
  13. DEXAMETHASONE [Concomitant]
     Route: 042
     Dates: start: 20120611
  14. ONDANSETRON [Concomitant]
     Route: 042
     Dates: start: 20120611
  15. PLACEBO [Suspect]
     Indication: COLON CANCER
     Route: 065

REACTIONS (1)
  - Enterocutaneous fistula [Recovered/Resolved]
